FAERS Safety Report 9179322 (Version 1)
Quarter: 2012Q4

REPORT INFORMATION
  Report Type: 
  Country: US (occurrence: US)
  Receive Date: 20121029
  Receipt Date: 20121029
  Transmission Date: 20130627
  Serious: No
  Sender: FDA-Public Use
  Company Number: US-AMGEN-USASP2012055140

PATIENT
  Age: 67 Year
  Sex: Female
  Weight: 101.59 kg

DRUGS (15)
  1. ENBREL [Suspect]
     Indication: PRODUCT USED FOR UNKNOWN INDICATION
     Dosage: 50 mg, qwk
     Route: 058
  2. CENTRUM SILVER                     /02363801/ [Concomitant]
     Dosage: UNK
     Route: 048
  3. OPTIVAR [Concomitant]
     Dosage: 0.05 %, UNK
     Route: 047
  4. BENADRYL                           /00000402/ [Concomitant]
     Dosage: 25 mg, UNK
     Route: 048
  5. DIOVAN [Concomitant]
     Dosage: 160 mg, UNK
     Route: 048
  6. ADVAIR [Concomitant]
     Dosage: 100/50 IN
  7. PREVACID [Concomitant]
     Dosage: 30 mg, UNK
     Route: 048
  8. HYDONE [Concomitant]
     Dosage: SOL 5-300/5 EX
  9. WARFARIN [Concomitant]
     Dosage: 5 mg, UNK
     Route: 048
  10. VERAPAMIL [Concomitant]
     Dosage: 120 mg, UNK, SR
     Route: 048
  11. VITAMIN D /00107901/ [Concomitant]
     Dosage: 400 UNK, UNK
     Route: 048
  12. CALCIUM D                          /00944201/ [Concomitant]
     Dosage: UNK
     Route: 048
  13. CARAFATE [Concomitant]
     Dosage: SUS 1 GM/10ML
     Route: 048
  14. METHOTREXATE [Concomitant]
     Dosage: 1 g, UNK
     Route: 058
  15. LEUCOVORIN                         /00566701/ [Concomitant]
     Dosage: 350 mg, UNK
     Route: 058

REACTIONS (1)
  - Injection site pain [Unknown]
